FAERS Safety Report 5308746-8 (Version None)
Quarter: 2007Q2

REPORT INFORMATION
  Report Type: 
  Country: None (occurrence: None)
  Receive Date: 20070426
  Receipt Date: 20070425
  Transmission Date: 20071010
  Serious: Yes (Other)
  Sender: FDA-Public Use
  Company Number: US-GLAXOSMITHKLINE-A0648459A

PATIENT
  Sex: Female

DRUGS (3)
  1. NICODERM CQ [Suspect]
     Indication: SMOKING CESSATION THERAPY
     Route: 062
  2. CELEXA [Concomitant]
     Indication: DEPRESSION
  3. ZYPREXA [Concomitant]
     Indication: PANIC DISORDER

REACTIONS (2)
  - HALLUCINATION [None]
  - PALPITATIONS [None]
